FAERS Safety Report 9204487 (Version 1)
Quarter: 2013Q1

REPORT INFORMATION
  Report Type: Spontaneous
  Country: CA (occurrence: None)
  Receive Date: 20130329
  Receipt Date: 20130329
  Transmission Date: 20140127
  Serious: Yes (Other)
  Sender: FDA-Public Use
  Company Number: 2013-097

PATIENT
  Age: 58 Year
  Sex: Male

DRUGS (2)
  1. CLOZAPINE [Suspect]
     Route: 048
  2. CIPROFLOXACIN [Suspect]
     Route: 042

REACTIONS (4)
  - Antipsychotic drug level increased [None]
  - Hepatic enzyme increased [None]
  - Urinary tract infection [None]
  - Drug interaction [None]
